FAERS Safety Report 8333361-1 (Version None)
Quarter: 2012Q2

REPORT INFORMATION
  Report Type: 
  Country: None (occurrence: None)
  Receive Date: 20120503
  Receipt Date: 20120426
  Transmission Date: 20120825
  Serious: Yes (Hospitalization)
  Sender: FDA-Public Use
  Company Number: GB-GENZYME-CAMP-1002177

PATIENT
  Sex: Female
  Weight: 58.9 kg

DRUGS (5)
  1. RIZATRIPTAN [Concomitant]
     Indication: MIGRAINE
     Dosage: 30 MG, PRN
     Route: 048
     Dates: start: 20040301
  2. ALEMTUZUMAB [Suspect]
     Dosage: 12 MG, QD
     Route: 042
     Dates: start: 20090316, end: 20090320
  3. INTRAUTERINE CONTRACEPTIVES [Concomitant]
     Indication: CONTRACEPTION
     Dosage: UNK
     Route: 015
     Dates: start: 20090308
  4. ALEMTUZUMAB [Suspect]
     Indication: MULTIPLE SCLEROSIS
     Dosage: 12 MG, QD
     Route: 042
     Dates: start: 20100315, end: 20100317
  5. CITALOPRAM [Concomitant]
     Indication: ANXIETY
     Dosage: 20 MG, QD
     Route: 048
     Dates: start: 20080915

REACTIONS (1)
  - PEPTIC ULCER [None]
